FAERS Safety Report 8559727-2 (Version None)
Quarter: 2012Q3

REPORT INFORMATION
  Report Type: 
  Country: None (occurrence: None)
  Receive Date: 20120802
  Receipt Date: 20120726
  Transmission Date: 20120928
  Serious: Yes (Other)
  Sender: FDA-Public Use
  Company Number: GB-PFIZER INC-2012181131

PATIENT
  Age: 49 Year
  Sex: Male

DRUGS (2)
  1. CISPLATIN [Suspect]
     Indication: TONSIL CANCER
     Dosage: UNK
     Dates: start: 20100901, end: 20101001
  2. CLOZAPINE [Suspect]
     Dosage: UNK
     Route: 048
     Dates: start: 20100624

REACTIONS (4)
  - DRUG INTERACTION [None]
  - TONSIL CANCER [None]
  - LEUKOPENIA [None]
  - NEUTROPHIL COUNT DECREASED [None]
